FAERS Safety Report 10046971 (Version 3)
Quarter: 2014Q4

REPORT INFORMATION
  Report Type: Spontaneous
  Country: GB (occurrence: GB)
  Receive Date: 20140331
  Receipt Date: 20141024
  Transmission Date: 20150528
  Serious: Yes (Hospitalization)
  Sender: FDA-Public Use
  Company Number: PHFR2014GB002480

PATIENT
  Sex: Male

DRUGS (2)
  1. CLOZARIL [Interacting]
     Active Substance: CLOZAPINE
     Dosage: UNK
     Route: 048
     Dates: start: 20140718
  2. CLOZARIL [Suspect]
     Active Substance: CLOZAPINE
     Indication: SCHIZOPHRENIA
     Dosage: UKN
     Route: 048
     Dates: start: 20091027

REACTIONS (7)
  - Tuberculosis [Unknown]
  - Lower respiratory tract infection [Unknown]
  - Drug interaction [Unknown]
  - No therapeutic response [Unknown]
  - Malaise [Unknown]
  - Weight decreased [Unknown]
  - Diabetes mellitus [Unknown]
